FAERS Safety Report 16001305 (Version 2)
Quarter: 2019Q1

REPORT INFORMATION
  Report Type: Spontaneous
  Country: US (occurrence: US)
  Receive Date: 20190225
  Receipt Date: 20190315
  Transmission Date: 20190418
  Serious: Yes (Other)
  Sender: FDA-Public Use
  Company Number: US-TEVA-2019-US-1015949

PATIENT
  Sex: Female

DRUGS (2)
  1. MEDROXYPROGESTERONE ACETATE TABLETS TEVA [Suspect]
     Active Substance: MEDROXYPROGESTERONE ACETATE
     Dates: start: 20190114, end: 20190120
  2. MEDROXYPROGESTERONE ACETATE TABLETS TEVA [Suspect]
     Active Substance: MEDROXYPROGESTERONE ACETATE
     Indication: UTERINE DILATION AND CURETTAGE
     Dates: start: 20190113

REACTIONS (19)
  - Haemorrhage [Unknown]
  - Sleep disorder [Unknown]
  - Breast tenderness [Unknown]
  - Dysarthria [Unknown]
  - Confusional state [Unknown]
  - Emotional disorder [Unknown]
  - Insomnia [Unknown]
  - Visual impairment [Unknown]
  - Restless legs syndrome [Unknown]
  - Pain in extremity [Unknown]
  - Anxiety [Unknown]
  - Loss of employment [Unknown]
  - Headache [Unknown]
  - Depression [Unknown]
  - Amnesia [Unknown]
  - Crying [Unknown]
  - Abdominal pain [Unknown]
  - Fatigue [Unknown]
  - Peripheral swelling [Unknown]

NARRATIVE: CASE EVENT DATE: 20190113
